FAERS Safety Report 14145322 (Version 1)
Quarter: 2017Q4

REPORT INFORMATION
  Report Type: Spontaneous
  Country: US (occurrence: None)
  Receive Date: 20171030
  Receipt Date: 20171030
  Transmission Date: 20180321
  Serious: Yes (Other)
  Sender: FDA-Public Use
  Company Number: None

PATIENT
  Age: 40 Year
  Sex: Female

DRUGS (1)
  1. HUMIRA [Suspect]
     Active Substance: ADALIMUMAB
     Indication: PSORIASIS
     Route: 058
     Dates: start: 20170928

REACTIONS (5)
  - Emotional distress [None]
  - Frustration tolerance decreased [None]
  - Anger [None]
  - Scar [None]
  - Pruritus [None]

NARRATIVE: CASE EVENT DATE: 20160926
